FAERS Safety Report 8950255 (Version 3)
Quarter: 2013Q2

REPORT INFORMATION
  Report Type: Report from Study
  Country: US (occurrence: US)
  Receive Date: 20121205
  Receipt Date: 20130423
  Transmission Date: 20140414
  Serious: Yes (Hospitalization)
  Sender: FDA-Public Use
  Company Number: US-US-EMD SERONO, INC.-7178843

PATIENT
  Sex: Female
  Weight: 65 kg

DRUGS (1)
  1. REBIF [Suspect]
     Indication: MULTIPLE SCLEROSIS
     Route: 058
     Dates: start: 20111109, end: 201212

REACTIONS (8)
  - Cholelithiasis [Recovering/Resolving]
  - Carcinoid tumour of the duodenum [Not Recovered/Not Resolved]
  - Gastric ulcer [Unknown]
  - Flatulence [Unknown]
  - Burning sensation [Unknown]
  - Pyrexia [Recovered/Resolved]
  - Headache [Recovered/Resolved]
  - Pain [Unknown]
